FAERS Safety Report 5422364-2 (Version None)
Quarter: 2007Q3

REPORT INFORMATION
  Report Type: 
  Country: None (occurrence: None)
  Receive Date: 20070822
  Receipt Date: 20070813
  Transmission Date: 20080115
  Serious: Yes (Hospitalization)
  Sender: FDA-Public Use
  Company Number: FR-MERCK-0708FRA00028

PATIENT
  Age: 57 Year
  Sex: Male

DRUGS (4)
  1. INVANZ [Suspect]
     Indication: PNEUMONIA
     Route: 042
     Dates: start: 20070606, end: 20070615
  2. CIPROFLOXACIN [Concomitant]
     Indication: PNEUMONIA
     Route: 042
     Dates: start: 20070606, end: 20070607
  3. VANCOMYCIN [Concomitant]
     Indication: PNEUMONIA
     Route: 042
     Dates: start: 20070607, end: 20070608
  4. GENTAMICIN [Concomitant]
     Indication: PNEUMONIA
     Route: 042
     Dates: start: 20070607, end: 20070608

REACTIONS (1)
  - DRUG ERUPTION [None]
